FAERS Safety Report 9379571 (Version 2)
Quarter: 2013Q4

REPORT INFORMATION
  Report Type: Report from Study
  Country: US (occurrence: US)
  Receive Date: 20130702
  Receipt Date: 20131004
  Transmission Date: 20140711
  Serious: Yes (Hospitalization)
  Sender: FDA-Public Use
  Company Number: US-ASTELLAS-2013EU005008

PATIENT
  Age: 30 Year
  Sex: Male
  Weight: 92.5 kg

DRUGS (64)
  1. BLINDED FIDAXOMICIN [Suspect]
     Indication: PROPHYLAXIS
     Dosage: 1 DF, UID/QD
     Route: 048
     Dates: start: 20130426, end: 20130604
  2. TACROLIMUS SYSTEMIC [Suspect]
     Indication: PROPHYLAXIS AGAINST GRAFT VERSUS HOST DISEASE
     Dosage: 60-80-MCG/HR-CONTINUOUS
     Route: 042
     Dates: start: 20130513, end: 20130519
  3. TACROLIMUS SYSTEMIC [Suspect]
     Dosage: 1 TO 2.5 MG, Q12H
     Route: 048
     Dates: start: 20130519
  4. LEVAQUIN [Concomitant]
     Indication: ANTIBIOTIC PROPHYLAXIS
     Dosage: 500 MG, QD
     Route: 048
     Dates: start: 20130501, end: 20130607
  5. LEVAQUIN [Concomitant]
     Indication: ANTIBIOTIC PROPHYLAXIS
  6. ATIVAN [Concomitant]
     Indication: NAUSEA
     Dosage: .5 - 1 MG, PRN
     Route: 042
     Dates: start: 20130423
  7. ATIVAN [Concomitant]
     Indication: VOMITING
  8. ATIVAN [Concomitant]
     Indication: ANXIETY
  9. ATIVAN [Concomitant]
     Indication: VOMITING
  10. ATIVAN [Concomitant]
     Indication: ANXIETY
  11. ROXICODONE [Concomitant]
     Indication: PAIN
     Dosage: 5 MG, PRN
     Route: 048
     Dates: start: 20130424, end: 20130603
  12. COMPAZINE                          /00013302/ [Concomitant]
     Indication: NAUSEA
     Dosage: 10 MG, PRN
     Route: 048
     Dates: start: 20130423, end: 20130521
  13. COMPAZINE                          /00013302/ [Concomitant]
     Indication: VOMITING
  14. COMPAZINE                          /00013302/ [Concomitant]
     Indication: NAUSEA
  15. COMPAZINE                          /00013302/ [Concomitant]
     Indication: VOMITING
  16. BIOTENE                            /06680101/ [Concomitant]
     Indication: DRY MOUTH
     Dosage: UNK UNK, PRN
     Route: 004
     Dates: start: 20130424
  17. MICAFUNGIN [Concomitant]
     Indication: ANTIFUNGAL PROPHYLAXIS
     Dosage: 100 ML, QD
     Route: 042
     Dates: start: 20130427, end: 20130515
  18. NEUPOGEN [Concomitant]
     Indication: INFECTION PROPHYLAXIS
     Dosage: 480 UG, UNKNOWN/D
     Route: 042
     Dates: start: 20130504, end: 20130521
  19. NEUPOGEN [Concomitant]
     Indication: INFECTION PROPHYLAXIS
  20. DESYREL [Concomitant]
     Indication: ANXIETY
     Dosage: 50 MG, PM
     Route: 048
     Dates: start: 20130503, end: 20130521
  21. ZOLOFT [Concomitant]
     Indication: ANXIETY
     Dosage: 12.5 MG, QD
     Route: 048
     Dates: start: 20130504
  22. MELATONIN [Concomitant]
     Indication: INSOMNIA
     Dosage: 5 MG, PM
     Route: 048
     Dates: start: 20130505
  23. MELATONIN [Concomitant]
     Dosage: 5 MG, PM
     Route: 048
     Dates: start: 20130505, end: 20130521
  24. CARAFATE [Concomitant]
     Indication: DYSPHAGIA
     Dosage: 1 G, QID
     Route: 048
     Dates: start: 20130504, end: 20130529
  25. ACYCLOVIR                          /00587301/ [Concomitant]
     Indication: ANTIVIRAL PROPHYLAXIS
     Dosage: 400 MG, BID
     Route: 048
     Dates: start: 20130428
  26. ACYCLOVIR                          /00587301/ [Concomitant]
     Indication: ANTIVIRAL PROPHYLAXIS
  27. NARCAN [Concomitant]
     Dosage: UNK MG, PRN
     Route: 042
     Dates: start: 20130424, end: 20130529
  28. CUBICIN [Concomitant]
     Indication: PYREXIA
     Dosage: 500 MG, QID
     Route: 042
     Dates: start: 20130511, end: 20130515
  29. CUBICIN [Concomitant]
     Indication: PAIN
  30. CUBICIN [Concomitant]
     Indication: PYREXIA
  31. CUBICIN [Concomitant]
     Indication: PAIN
  32. VFEND [Concomitant]
     Indication: ANTIFUNGAL PROPHYLAXIS
     Dosage: 100-300, MG, BID
     Route: 048
     Dates: start: 20130516
  33. METHOTREXATE [Concomitant]
     Indication: CHEMOTHERAPY
     Dosage: 10-32.5-MG-EVERY 3 DAYS
     Route: 042
     Dates: start: 20130504, end: 20130514
  34. MERREM [Concomitant]
     Indication: PYREXIA
     Dosage: 500 MG, QID
     Route: 042
     Dates: start: 20130512, end: 20130513
  35. MERREM [Concomitant]
     Indication: PAIN
  36. MERREM [Concomitant]
     Indication: PYREXIA
  37. MERREM [Concomitant]
     Indication: PAIN
  38. ZANTAC [Concomitant]
     Indication: GASTROOESOPHAGEAL REFLUX DISEASE
     Dosage: 50 MG, SINGLE
     Route: 042
     Dates: start: 20130513, end: 20130513
  39. IMITREX                            /01044801/ [Concomitant]
     Indication: HEADACHE
     Dosage: 100 MG, PRN
     Route: 048
     Dates: start: 20130513, end: 20130513
  40. IMITREX                            /01044801/ [Concomitant]
     Dosage: 100 MG, PRN
     Route: 048
     Dates: start: 20130513
  41. AZACTAM [Concomitant]
     Indication: PYREXIA
     Dosage: 2 G, SINGLE
     Route: 042
     Dates: start: 20130516, end: 20130516
  42. AZACTAM [Concomitant]
     Indication: PAIN
  43. AZACTAM [Concomitant]
     Indication: PYREXIA
  44. AZACTAM [Concomitant]
     Indication: PAIN
  45. CHRONULAC [Concomitant]
     Indication: CONSTIPATION
     Dosage: 10 G, PRN
     Route: 048
     Dates: start: 20130518, end: 20130529
  46. CHRONULAC [Concomitant]
     Indication: CONSTIPATION
  47. BENADRYL                           /00000402/ [Concomitant]
     Indication: HYPERSENSITIVITY
     Dosage: 25-50 MG, PRN
     Route: 050
     Dates: start: 20130501, end: 20130528
  48. BENADRYL                           /00000402/ [Concomitant]
     Indication: ANAPHYLAXIS PROPHYLAXIS
  49. BENADRYL                           /00000402/ [Concomitant]
     Indication: HYPERSENSITIVITY
  50. BENADRYL                           /00000402/ [Concomitant]
     Indication: ANAPHYLAXIS PROPHYLAXIS
  51. HYDROCORTISONE [Concomitant]
     Indication: RASH
     Dosage: 50-100 MG, PRN
     Route: 042
     Dates: start: 20130513, end: 20130521
  52. HYDROCORTISONE [Concomitant]
     Indication: SWELLING FACE
  53. HYDROCORTISONE [Concomitant]
     Indication: ANAPHYLAXIS PROPHYLAXIS
  54. HYDROCORTISONE [Concomitant]
     Indication: RASH
  55. HYDROCORTISONE [Concomitant]
     Indication: SWELLING FACE
  56. HYDROCORTISONE [Concomitant]
     Indication: ANAPHYLAXIS PROPHYLAXIS
  57. PROTONIX [Concomitant]
     Indication: PROPHYLAXIS AGAINST GASTROINTESTINAL ULCER
     Dosage: 40 MG, AM
     Route: 048
     Dates: start: 20130218
  58. PERI-COLACE [Concomitant]
     Indication: CONSTIPATION
     Dosage: 8.6-50 MG, PRN
     Route: 048
     Dates: start: 20130424
  59. MIRALAX [Concomitant]
     Indication: CONSTIPATION
     Dosage: 17 G, PRN
     Route: 048
     Dates: start: 20130424, end: 20130521
  60. ACTIGALL [Concomitant]
     Indication: PROPHYLAXIS
     Dosage: 300 MG, TID
     Route: 048
     Dates: start: 20130423, end: 20130702
  61. ACTIGALL [Concomitant]
     Indication: PROPHYLAXIS
  62. CYCLOSPORINE [Concomitant]
     Indication: PROPHYLAXIS AGAINST GRAFT VERSUS HOST DISEASE
     Dosage: 225 MG, Q12H
     Route: 042
     Dates: start: 20130423, end: 20130513
  63. DITROPAN [Concomitant]
     Indication: POLYURIA
     Dosage: 5 MG, PRN
     Route: 048
     Dates: start: 20130524, end: 20130611
  64. CLARITINE [Concomitant]
     Indication: PREMEDICATION
     Dosage: 10 MG, UID/QD
     Route: 048
     Dates: start: 20130509, end: 20130529

REACTIONS (1)
  - Pericarditis [Recovered/Resolved]
